FAERS Safety Report 4713595-5 (Version None)
Quarter: 2005Q3

REPORT INFORMATION
  Report Type: 
  Country: None (occurrence: None)
  Receive Date: 20050712
  Receipt Date: 20050629
  Transmission Date: 20060218
  Serious: Yes (Other)
  Sender: FDA-Public Use
  Company Number: 2005-01259

PATIENT
  Age: 70 Year
  Sex: Female

DRUGS (1)
  1. IMMUCYST [Suspect]
     Indication: BLADDER CANCER
     Dosage: I.VES.,BLADDER
     Dates: start: 20050430, end: 20050606

REACTIONS (2)
  - ARTHRALGIA [None]
  - JOINT SWELLING [None]
